FAERS Safety Report 8505404-3 (Version None)
Quarter: 2012Q3

REPORT INFORMATION
  Report Type: 
  Country: None (occurrence: None)
  Receive Date: 20120712
  Receipt Date: 20120712
  Transmission Date: 20120928
  Serious: Yes (Other)
  Sender: FDA-Public Use
  Company Number: ZA-PFIZER INC-2012163461

PATIENT
  Age: 56 Year
  Sex: Male

DRUGS (6)
  1. DIOVAN HCT [Concomitant]
     Indication: BLOOD PRESSURE
  2. RAPAMUNE [Suspect]
  3. LOSARTAN [Concomitant]
     Indication: BLOOD PRESSURE
  4. WARFARIN [Concomitant]
     Indication: THROMBOSIS PROPHYLAXIS
  5. ARAVA [Concomitant]
  6. PREDNISONE [Concomitant]

REACTIONS (3)
  - PULMONARY HYPERTENSION [None]
  - URINE PROTEIN/CREATININE RATIO INCREASED [None]
  - DYSPNOEA EXERTIONAL [None]
